FAERS Safety Report 21958791 (Version 1)
Quarter: 2023Q1

REPORT INFORMATION
  Report Type: Report from Study
  Country: ZA (occurrence: ZA)
  Receive Date: 20230206
  Receipt Date: 20230206
  Transmission Date: 20230418
  Serious: Yes (Disabling)
  Sender: FDA-Public Use
  Company Number: ZA-002147023-NVSC2023ZA019703

PATIENT
  Age: 58 Year
  Sex: Female

DRUGS (1)
  1. SIPONIMOD [Suspect]
     Active Substance: SIPONIMOD
     Indication: Secondary progressive multiple sclerosis
     Dosage: UNK, QD (2 X 0.25 MG) AS PER SCHEDULED IN MORNING (ADMINISTRATION AS PER KIENDRA TITRATION SCHEDULE)
     Route: 048
     Dates: start: 20221231

REACTIONS (4)
  - Spinal fracture [Unknown]
  - Spondylitis [Unknown]
  - Procedural pain [Unknown]
  - Back pain [Unknown]
